FAERS Safety Report 8070682-4 (Version None)
Quarter: 2012Q1

REPORT INFORMATION
  Report Type: 
  Country: None (occurrence: None)
  Receive Date: 20120125
  Receipt Date: 20120123
  Transmission Date: 20120608
  Serious: No
  Sender: FDA-Public Use
  Company Number: US-BAYER-2012-007639

PATIENT
  Sex: Female

DRUGS (1)
  1. AVELOX [Suspect]
     Indication: INFECTION
     Dosage: 400MG
     Route: 048
     Dates: start: 20120118, end: 20120118

REACTIONS (2)
  - URTICARIA [None]
  - HYPERHIDROSIS [None]
